FAERS Safety Report 19811415 (Version 2)
Quarter: 2021Q3

REPORT INFORMATION
  Report Type: Spontaneous
  Country: FR (occurrence: FR)
  Receive Date: 20210909
  Receipt Date: 20210927
  Transmission Date: 20211014
  Serious: Yes (Other)
  Sender: FDA-Public Use
  Company Number: FR-PFIZER INC-202101121520

PATIENT
  Age: 69 Year
  Sex: Female
  Weight: 66.5 kg

DRUGS (12)
  1. PACLITAXEL. [Suspect]
     Active Substance: PACLITAXEL
     Dosage: 100 MG/16.7 ML COURSE  4 ? 156MG
     Route: 065
     Dates: start: 20210708
  2. PACLITAXEL. [Suspect]
     Active Substance: PACLITAXEL
     Dosage: 100 MG/16.7 ML COURSE 5 ? 156MG
     Route: 065
     Dates: start: 20210715
  3. PACLITAXEL. [Suspect]
     Active Substance: PACLITAXEL
     Dosage: 100 MG/16.7 ML COURSE 9 ? 120MG
     Route: 065
     Dates: start: 20210812
  4. PACLITAXEL. [Suspect]
     Active Substance: PACLITAXEL
     Dosage: 100 MG/16.7 ML COURSE 3 ? 156MG
     Route: 065
     Dates: start: 20210701
  5. PACLITAXEL. [Suspect]
     Active Substance: PACLITAXEL
     Dosage: 100 MG/16.7 ML COURSE  8 ? 156MG
     Route: 065
     Dates: start: 20210805
  6. CYTARABINE. [Suspect]
     Active Substance: CYTARABINE
     Indication: BREAST CANCER
     Dosage: UNK
     Route: 065
  7. PACLITAXEL. [Suspect]
     Active Substance: PACLITAXEL
     Dosage: 100 MG/16.7 ML COURSE  2 ? 156MG
     Route: 065
     Dates: start: 20210624
  8. PACLITAXEL. [Suspect]
     Active Substance: PACLITAXEL
     Dosage: 100 MG/16.7 ML COURE 7 ? 156MG
     Route: 065
     Dates: start: 20210729
  9. EPIRUBICIN HCL [Suspect]
     Active Substance: EPIRUBICIN HYDROCHLORIDE
     Indication: BREAST CANCER
     Dosage: UNK
  10. PACLITAXEL. [Suspect]
     Active Substance: PACLITAXEL
     Indication: BREAST CANCER
     Dosage: 100 MG/16.7 ML
     Route: 065
     Dates: start: 20210301
  11. PACLITAXEL. [Suspect]
     Active Substance: PACLITAXEL
     Dosage: 100 MG/16.7 ML 156MG, WEEKLY
     Route: 065
     Dates: start: 20210617
  12. PACLITAXEL. [Suspect]
     Active Substance: PACLITAXEL
     Dosage: 100 MG/16.7 ML COURSE 6 ? 156MG
     Route: 065
     Dates: start: 20210722

REACTIONS (8)
  - Paraesthesia [Unknown]
  - Xerophthalmia [Unknown]
  - Photosensitivity reaction [Unknown]
  - Rosacea [Unknown]
  - Off label use [Unknown]
  - Neuropathy peripheral [Not Recovered/Not Resolved]
  - Epistaxis [Unknown]
  - Rash erythematous [Unknown]

NARRATIVE: CASE EVENT DATE: 202107
